FAERS Safety Report 12612284 (Version 4)
Quarter: 2016Q3

REPORT INFORMATION
  Report Type: Spontaneous
  Country: IT (occurrence: IT)
  Receive Date: 20160801
  Receipt Date: 20160909
  Transmission Date: 20161109
  Serious: Yes (Other)
  Sender: FDA-Public Use
  Company Number: IT-PFIZER INC-2016360252

PATIENT
  Age: 64 Year
  Sex: Female
  Weight: 83 kg

DRUGS (8)
  1. LEDERFOLIN [Concomitant]
     Active Substance: LEUCOVORIN CALCIUM
     Indication: RECTAL CANCER
     Dosage: 300 MG, UNK
     Route: 042
  2. NORITREN [Concomitant]
     Active Substance: NORTRIPTYLINE HYDROCHLORIDE
     Dosage: UNK
  3. RAMIPRIL. [Concomitant]
     Active Substance: RAMIPRIL
     Dosage: UNK
  4. IRINOTECAN HCL [Suspect]
     Active Substance: IRINOTECAN HYDROCHLORIDE
     Indication: RECTAL CANCER
     Dosage: 340 MG, CYCLIC
     Route: 042
     Dates: start: 20151102, end: 20160413
  5. FLUOROURACIL. [Concomitant]
     Active Substance: FLUOROURACIL
     Indication: RECTAL CANCER
     Dosage: 3700 MG, CYCLIC
     Route: 042
     Dates: start: 20151102, end: 20160613
  6. TOLEP [Concomitant]
     Active Substance: OXCARBAZEPINE
     Dosage: UNK
  7. ERBITUX [Concomitant]
     Active Substance: CETUXIMAB
     Indication: RECTAL CANCER
     Dosage: 480 MG, CYCLIC
     Route: 042
     Dates: start: 20151102, end: 20160613
  8. EUTIROX [Concomitant]
     Active Substance: LEVOTHYROXINE SODIUM
     Dosage: UNK

REACTIONS (1)
  - Infusion related reaction [Recovered/Resolved]

NARRATIVE: CASE EVENT DATE: 20160413
